FAERS Safety Report 12349045 (Version 4)
Quarter: 2016Q3

REPORT INFORMATION
  Report Type: Report from Study
  Country: US (occurrence: US)
  Receive Date: 20160509
  Receipt Date: 20160715
  Transmission Date: 20161109
  Serious: Yes (Death, Hospitalization, Other)
  Sender: FDA-Public Use
  Company Number: US-GILEAD-2016-0212504

PATIENT
  Age: 63 Year
  Sex: Male

DRUGS (20)
  1. LEVOXYL [Concomitant]
     Active Substance: LEVOTHYROXINE SODIUM
  2. ADCIRCA [Suspect]
     Active Substance: TADALAFIL
     Indication: PRODUCT USED FOR UNKNOWN INDICATION
     Route: 065
  3. DIAZEPAM. [Concomitant]
     Active Substance: DIAZEPAM
  4. IMODIUM [Concomitant]
     Active Substance: LOPERAMIDE HYDROCHLORIDE
  5. POTASSIUM [Concomitant]
     Active Substance: POTASSIUM
  6. METOLAZONE. [Concomitant]
     Active Substance: METOLAZONE
  7. LIPITOR [Concomitant]
     Active Substance: ATORVASTATIN CALCIUM
  8. WARFARIN [Concomitant]
     Active Substance: WARFARIN
  9. AMBRISENTAN [Suspect]
     Active Substance: AMBRISENTAN
     Indication: PULMONARY ARTERIAL HYPERTENSION
     Dosage: 10 UNK, QD
     Route: 065
     Dates: start: 20121022, end: 20160529
  10. REMODULIN [Suspect]
     Active Substance: TREPROSTINIL
     Indication: PRODUCT USED FOR UNKNOWN INDICATION
     Dosage: 0.142 UG/KG, UNK
     Route: 065
     Dates: start: 20160424, end: 20160505
  11. DIGOXIN. [Concomitant]
     Active Substance: DIGOXIN
  12. LASIX [Concomitant]
     Active Substance: FUROSEMIDE
  13. TRADJENTA [Concomitant]
     Active Substance: LINAGLIPTIN
  14. CARDIZEM CD [Concomitant]
     Active Substance: DILTIAZEM HYDROCHLORIDE
  15. ZOLOFT [Concomitant]
     Active Substance: SERTRALINE HYDROCHLORIDE
  16. OXYCODONE [Concomitant]
     Active Substance: OXYCODONE
  17. GLIPIZIDE. [Concomitant]
     Active Substance: GLIPIZIDE
  18. BUMEX [Concomitant]
     Active Substance: BUMETANIDE
  19. SPIRONOLACTONE. [Concomitant]
     Active Substance: SPIRONOLACTONE
  20. TRAMADOL. [Concomitant]
     Active Substance: TRAMADOL

REACTIONS (4)
  - Renal failure [Fatal]
  - Pain [Unknown]
  - Fluid retention [Not Recovered/Not Resolved]
  - Cardiac disorder [Unknown]
